FAERS Safety Report 7222479-2 (Version None)
Quarter: 2011Q1

REPORT INFORMATION
  Report Type: 
  Country: None (occurrence: None)
  Receive Date: 20110112
  Receipt Date: 20110106
  Transmission Date: 20110831
  Serious: Yes (Other)
  Sender: FDA-Public Use
  Company Number: FR-PFIZER INC-2011003419

PATIENT
  Age: 48 Year
  Sex: Female

DRUGS (2)
  1. ZOLOFT [Suspect]
     Indication: DEPRESSION
     Route: 048
  2. ADRENALINE [Interacting]
     Indication: DENTAL OPERATION
     Dosage: 1 DF, SINGLE

REACTIONS (6)
  - OVERDOSE [None]
  - TOXICITY TO VARIOUS AGENTS [None]
  - DRUG INTERACTION [None]
  - CHEST PAIN [None]
  - TREMOR [None]
  - HEMIPARESIS [None]
